FAERS Safety Report 14742649 (Version 6)
Quarter: 2018Q2

REPORT INFORMATION
  Report Type: Report from Study
  Country: US (occurrence: US)
  Receive Date: 20180410
  Receipt Date: 20180619
  Transmission Date: 20180711
  Serious: Yes (Hospitalization)
  Sender: FDA-Public Use
  Company Number: US-BAYER-2018-065141

PATIENT
  Age: 47 Year
  Sex: Female

DRUGS (1)
  1. STIVARGA [Suspect]
     Active Substance: REGORAFENIB
     Indication: COLORECTAL CANCER METASTATIC
     Dosage: 120 MG, QD, 21 DAYS ON AND 7 DAYS OFF
     Route: 048
     Dates: start: 20180321, end: 20180529

REACTIONS (9)
  - Pruritus [None]
  - Off label use [None]
  - Diarrhoea [Recovered/Resolved]
  - Drug dose omission [None]
  - Hospitalisation [None]
  - Urinary tract infection [None]
  - Dysphonia [None]
  - Nausea [None]
  - Drug ineffective [None]

NARRATIVE: CASE EVENT DATE: 2018
